FAERS Safety Report 6063946-7 (Version None)
Quarter: 2009Q1

REPORT INFORMATION
  Report Type: 
  Country: None (occurrence: None)
  Receive Date: 20090204
  Receipt Date: 20090127
  Transmission Date: 20090719
  Serious: Yes (Other)
  Sender: FDA-Public Use
  Company Number: PHBS2009TR00582

PATIENT
  Age: 19 Year
  Sex: Female

DRUGS (2)
  1. CARBAMAZEPINE [Suspect]
     Dosage: 200MG/DAY
  2. CARBAMAZEPINE [Suspect]
     Dosage: 400MG/DAY

REACTIONS (5)
  - ANAEMIA [None]
  - CENTRAL NERVOUS SYSTEM LESION [None]
  - DRUG WITHDRAWAL SYNDROME [None]
  - HALLUCINATION, VISUAL [None]
  - PERSECUTORY DELUSION [None]
